FAERS Safety Report 6412183-2 (Version None)
Quarter: 2009Q4

REPORT INFORMATION
  Report Type: 
  Country: None (occurrence: None)
  Receive Date: 20091023
  Receipt Date: 20091021
  Transmission Date: 20100525
  Serious: Yes (Other)
  Sender: FDA-Public Use
  Company Number: A0812669A

PATIENT
  Age: 54 Year
  Sex: Female
  Weight: 63.6 kg

DRUGS (4)
  1. AVANDIA [Suspect]
     Indication: DRUG USE FOR UNKNOWN INDICATION
     Dosage: 8MG PER DAY
     Route: 048
  2. LIPITOR [Suspect]
     Indication: DRUG USE FOR UNKNOWN INDICATION
     Dosage: 10MG PER DAY
     Route: 048
  3. DIAMICRON [Concomitant]
     Route: 048
  4. METFORMIN HCL [Concomitant]
     Route: 048

REACTIONS (3)
  - ANAEMIA [None]
  - UTERINE ENLARGEMENT [None]
  - VAGINAL HAEMORRHAGE [None]
